FAERS Safety Report 5557216-0 (Version None)
Quarter: 2007Q4

REPORT INFORMATION
  Report Type: 
  Country: None (occurrence: None)
  Receive Date: 20071214
  Receipt Date: 20071203
  Transmission Date: 20080405
  Serious: Yes (Hospitalization)
  Sender: FDA-Public Use
  Company Number: CA-NOVOPROD-269341

PATIENT

DRUGS (7)
  1. NIASTASE [Suspect]
     Indication: HAEMORRHAGE
     Dosage: 4.8 MG, UNK
     Route: 042
     Dates: start: 20060209
  2. NIASTASE [Suspect]
     Dosage: 4.8 MG, UNK
     Dates: start: 20060209
  3. RED BLOOD CELLS [Concomitant]
     Dates: start: 20060208, end: 20061008
  4. FRESH FROZEN PLASMA [Concomitant]
     Dates: start: 20060208, end: 20060224
  5. PLATELETS [Concomitant]
     Dates: start: 20060208, end: 20060224
  6. CRYOPRECIPITATES [Concomitant]
     Dates: start: 20060208, end: 20060209
  7. ALBUMIN (HUMAN) [Concomitant]
     Dates: start: 20060210, end: 20060926

REACTIONS (1)
  - RENAL FAILURE [None]
